FAERS Safety Report 17933966 (Version 7)
Quarter: 2025Q4

REPORT INFORMATION
  Report Type: Spontaneous
  Country: US (occurrence: US)
  Receive Date: 20200624
  Receipt Date: 20251229
  Transmission Date: 20260117
  Serious: Yes (Other)
  Sender: GILEAD
  Company Number: US-GILEAD-2020-0475148

PATIENT
  Age: 50 Year
  Sex: Female
  Weight: 84.82 kg

DRUGS (105)
  1. ATRIPLA [Suspect]
     Active Substance: EFAVIRENZ\EMTRICITABINE\TENOFOVIR DISOPROXIL FUMARATE
     Indication: HIV infection
     Dosage: UNK
     Route: 048
     Dates: start: 2007, end: 2017
  2. ATRIPLA [Suspect]
     Active Substance: EFAVIRENZ\EMTRICITABINE\TENOFOVIR DISOPROXIL FUMARATE
     Dosage: UNK
     Route: 048
     Dates: start: 2010, end: 2015
  3. ATRIPLA [Suspect]
     Active Substance: EFAVIRENZ\EMTRICITABINE\TENOFOVIR DISOPROXIL FUMARATE
     Dosage: UNK
     Route: 048
     Dates: start: 2007, end: 2015
  4. ATRIPLA [Suspect]
     Active Substance: EFAVIRENZ\EMTRICITABINE\TENOFOVIR DISOPROXIL FUMARATE
     Dosage: UNK
     Route: 065
     Dates: start: 20091021, end: 20121026
  5. ATRIPLA [Suspect]
     Active Substance: EFAVIRENZ\EMTRICITABINE\TENOFOVIR DISOPROXIL FUMARATE
     Dosage: UNK
     Route: 065
     Dates: start: 20130312, end: 20130315
  6. ATRIPLA [Suspect]
     Active Substance: EFAVIRENZ\EMTRICITABINE\TENOFOVIR DISOPROXIL FUMARATE
     Dosage: UNK
     Route: 065
     Dates: start: 20130315, end: 20130415
  7. ATRIPLA [Suspect]
     Active Substance: EFAVIRENZ\EMTRICITABINE\TENOFOVIR DISOPROXIL FUMARATE
     Dosage: UNK
     Route: 065
     Dates: start: 20130625, end: 20130819
  8. ATRIPLA [Suspect]
     Active Substance: EFAVIRENZ\EMTRICITABINE\TENOFOVIR DISOPROXIL FUMARATE
     Dosage: UNK
     Route: 065
     Dates: start: 20140317, end: 20140409
  9. ATRIPLA [Suspect]
     Active Substance: EFAVIRENZ\EMTRICITABINE\TENOFOVIR DISOPROXIL FUMARATE
     Dosage: UNK
     Route: 065
     Dates: start: 2007, end: 20120421
  10. ATRIPLA [Suspect]
     Active Substance: EFAVIRENZ\EMTRICITABINE\TENOFOVIR DISOPROXIL FUMARATE
     Dosage: UNK
     Route: 065
     Dates: start: 20120508, end: 20140308
  11. ATRIPLA [Suspect]
     Active Substance: EFAVIRENZ\EMTRICITABINE\TENOFOVIR DISOPROXIL FUMARATE
     Dosage: UNK
     Route: 065
     Dates: start: 20140319, end: 20151229
  12. STRIBILD [Suspect]
     Active Substance: COBICISTAT\ELVITEGRAVIR\EMTRICITABINE\TENOFOVIR DISOPROXIL FUMARATE
     Indication: HIV infection
     Dosage: UNK
     Route: 048
     Dates: start: 2017, end: 2018
  13. STRIBILD [Suspect]
     Active Substance: COBICISTAT\ELVITEGRAVIR\EMTRICITABINE\TENOFOVIR DISOPROXIL FUMARATE
     Dosage: UNK
     Route: 048
     Dates: start: 20151230, end: 20170907
  14. STRIBILD [Suspect]
     Active Substance: COBICISTAT\ELVITEGRAVIR\EMTRICITABINE\TENOFOVIR DISOPROXIL FUMARATE
     Dosage: UNK
     Route: 048
     Dates: start: 2015, end: 2018
  15. STRIBILD [Suspect]
     Active Substance: COBICISTAT\ELVITEGRAVIR\EMTRICITABINE\TENOFOVIR DISOPROXIL FUMARATE
     Dosage: UNK
     Route: 065
     Dates: start: 20170912, end: 20171003
  16. STRIBILD [Suspect]
     Active Substance: COBICISTAT\ELVITEGRAVIR\EMTRICITABINE\TENOFOVIR DISOPROXIL FUMARATE
     Dosage: UNK
     Route: 065
     Dates: start: 20171017, end: 20180215
  17. STRIBILD [Suspect]
     Active Substance: COBICISTAT\ELVITEGRAVIR\EMTRICITABINE\TENOFOVIR DISOPROXIL FUMARATE
     Dosage: UNK
     Route: 065
     Dates: start: 20151230, end: 20170119
  18. STRIBILD [Suspect]
     Active Substance: COBICISTAT\ELVITEGRAVIR\EMTRICITABINE\TENOFOVIR DISOPROXIL FUMARATE
     Dosage: UNK
     Route: 065
     Dates: start: 20170128, end: 201702
  19. STRIBILD [Suspect]
     Active Substance: COBICISTAT\ELVITEGRAVIR\EMTRICITABINE\TENOFOVIR DISOPROXIL FUMARATE
     Dosage: UNK
     Route: 065
     Dates: start: 20171018, end: 20171117
  20. VIREAD [Suspect]
     Active Substance: TENOFOVIR DISOPROXIL FUMARATE
     Indication: HIV infection
     Dosage: UNK
     Route: 048
     Dates: start: 2007, end: 2017
  21. BIKTARVY [Concomitant]
     Active Substance: BICTEGRAVIR SODIUM\EMTRICITABINE\TENOFOVIR ALAFENAMIDE FUMARATE
  22. DESCOVY [Concomitant]
     Active Substance: EMTRICITABINE\TENOFOVIR ALAFENAMIDE FUMARATE
  23. GENVOYA [Concomitant]
     Active Substance: COBICISTAT\ELVITEGRAVIR\EMTRICITABINE\TENOFOVIR ALAFENAMIDE FUMARATE
  24. LISINOPRIL [Concomitant]
     Active Substance: LISINOPRIL
  25. VISTARIL (HYDROXYZINE HYDROCHLORIDE) [Concomitant]
     Active Substance: HYDROXYZINE HYDROCHLORIDE
  26. PREDNISONE [Concomitant]
     Active Substance: PREDNISONE
  27. NEXIUM [Concomitant]
     Active Substance: ESOMEPRAZOLE MAGNESIUM
  28. DEXAMETHASONE [Concomitant]
     Active Substance: DEXAMETHASONE
  29. TOBRAMYCIN [Concomitant]
     Active Substance: TOBRAMYCIN
  30. ACETAMINOPHEN [Concomitant]
     Active Substance: ACETAMINOPHEN
  31. OXYCODONE AND ACETAMINOPHEN [Concomitant]
     Active Substance: ACETAMINOPHEN\OXYCODONE HYDROCHLORIDE
  32. ACETAMINOPHEN\TRAMADOL [Concomitant]
     Active Substance: ACETAMINOPHEN\TRAMADOL
  33. ACETAMINOPHEN\HYDROCODONE [Concomitant]
     Active Substance: ACETAMINOPHEN\HYDROCODONE
  34. AMOXICILLIN [Concomitant]
     Active Substance: AMOXICILLIN
  35. MELOXICAM [Concomitant]
     Active Substance: MELOXICAM
  36. BUTALBITAL AND ACETAMINOPHEN [Concomitant]
     Active Substance: ACETAMINOPHEN\BUTALBITAL
  37. PIROXICAM [Concomitant]
     Active Substance: PIROXICAM
  38. NABUMETONE [Concomitant]
     Active Substance: NABUMETONE
  39. KETOROLAC [Concomitant]
     Active Substance: KETOROLAC TROMETHAMINE
  40. METHYLPREDNISOLONE [Concomitant]
     Active Substance: METHYLPREDNISOLONE
  41. DIOVAN [Concomitant]
     Active Substance: VALSARTAN
  42. ACETAMINOPHEN\PROPOXYPHENE NAPSYLATE [Concomitant]
     Active Substance: ACETAMINOPHEN\PROPOXYPHENE NAPSYLATE
  43. EGRIFTA [Concomitant]
     Active Substance: TESAMORELIN ACETATE
  44. LYRICA [Concomitant]
     Active Substance: PREGABALIN
  45. TOPIRAMATE [Concomitant]
     Active Substance: TOPIRAMATE
  46. DOXYCYCLINE [Concomitant]
     Active Substance: DOXYCYCLINE
  47. TRAMADOL [Concomitant]
     Active Substance: TRAMADOL
  48. LEVOFLOXACIN [Concomitant]
     Active Substance: LEVOFLOXACIN
  49. CLONIDINE [Concomitant]
     Active Substance: CLONIDINE
  50. VENTOLIN [Concomitant]
     Active Substance: ALBUTEROL SULFATE
  51. PREMARIN [Concomitant]
     Active Substance: ESTROGENS, CONJUGATED
  52. MONTELUKAST [Concomitant]
     Active Substance: MONTELUKAST
  53. AMLODIPINE BESYLATE [Concomitant]
     Active Substance: AMLODIPINE BESYLATE
  54. TIZANIDINE [Concomitant]
     Active Substance: TIZANIDINE
  55. FLUTICASONE [Concomitant]
     Active Substance: FLUTICASONE
  56. BYSTOLIC [Concomitant]
     Active Substance: NEBIVOLOL HYDROCHLORIDE
  57. CEPHALEXIN [Concomitant]
     Active Substance: CEPHALEXIN
  58. ELIQUIS [Concomitant]
     Active Substance: APIXABAN
  59. ZINC SULFATE [Concomitant]
     Active Substance: ZINC SULFATE
  60. PREGABALIN [Concomitant]
     Active Substance: PREGABALIN
  61. BREO ELLIPTA [Concomitant]
     Active Substance: FLUTICASONE FUROATE\VILANTEROL TRIFENATATE
  62. ALBUTEROL\IPRATROPIUM [Concomitant]
     Active Substance: ALBUTEROL\IPRATROPIUM
  63. CLINDAMYCIN [Concomitant]
     Active Substance: CLINDAMYCIN
  64. DULOXETINE [Concomitant]
     Active Substance: DULOXETINE
  65. SENNA LEAF [Concomitant]
     Active Substance: SENNA LEAF
  66. VIRTUSSIN AC [Concomitant]
     Active Substance: CODEINE PHOSPHATE\GUAIFENESIN
  67. CHLORZOXAZONE [Concomitant]
     Active Substance: CHLORZOXAZONE
  68. CIPROFLOXACIN [Concomitant]
     Active Substance: CIPROFLOXACIN
  69. NITROFURANTOIN MONOHYDRATE MACROCRYSTALS [Concomitant]
     Active Substance: NITROFURANTOIN\NITROFURANTOIN MONOHYDRATE
  70. SENEXON [SENNA ALEXANDRINA EXTRACT] [Concomitant]
  71. SHINGRIX [Concomitant]
     Active Substance: RECOMBINANT VARICELLA ZOSTER VIRUS (VZV) GLYCOPROTEIN E
  72. LIDOCAINE [Concomitant]
     Active Substance: LIDOCAINE
  73. DICLOFENAC DIETHYLAMINE [Concomitant]
     Active Substance: DICLOFENAC DIETHYLAMINE
  74. FLUCONAZOLE [Concomitant]
     Active Substance: FLUCONAZOLE
  75. POTASSIUM CHLORIDE [Concomitant]
     Active Substance: POTASSIUM CHLORIDE
  76. METHOCARBAMOL [Concomitant]
     Active Substance: METHOCARBAMOL
  77. FENTANYL [Concomitant]
     Active Substance: FENTANYL
  78. ONDANSETRON [Concomitant]
     Active Substance: ONDANSETRON
  79. BUSPIRONE [Concomitant]
     Active Substance: BUSPIRONE HYDROCHLORIDE
  80. LORZONE [Concomitant]
     Active Substance: CHLORZOXAZONE
  81. CYCLOBENZAPRINE [Concomitant]
     Active Substance: CYCLOBENZAPRINE
  82. BACLOFEN [Concomitant]
     Active Substance: BACLOFEN
  83. HYDRALAZINE [Concomitant]
     Active Substance: HYDRALAZINE HYDROCHLORIDE
  84. VALSARTAN [Concomitant]
     Active Substance: VALSARTAN
  85. GABAPENTIN [Concomitant]
     Active Substance: GABAPENTIN
  86. ALPRAZOLAM [Concomitant]
     Active Substance: ALPRAZOLAM
  87. ZOLPIDEM [Concomitant]
     Active Substance: ZOLPIDEM TARTRATE
  88. SULFAMETHOXAZOLE AND TRIMETHOPRIM [Concomitant]
     Active Substance: SULFAMETHOXAZOLE\TRIMETHOPRIM
  89. AZITHROMYCIN [Concomitant]
     Active Substance: AZITHROMYCIN
  90. ZANAFLEX [Concomitant]
     Active Substance: TIZANIDINE HYDROCHLORIDE
  91. MEPRON [Concomitant]
     Active Substance: ATOVAQUONE
  92. NEEVO DHA [Concomitant]
  93. IMIPRAMINE [Concomitant]
     Active Substance: IMIPRAMINE
  94. XENICAL [Concomitant]
     Active Substance: ORLISTAT
  95. SINGULAIR [Concomitant]
     Active Substance: MONTELUKAST SODIUM
  96. MAGNESIUM OXIDE [Concomitant]
     Active Substance: MAGNESIUM OXIDE
  97. BETAMETHASONE\CLOTRIMAZOLE [Concomitant]
     Active Substance: BETAMETHASONE\CLOTRIMAZOLE
  98. DETROL LA [Concomitant]
     Active Substance: TOLTERODINE TARTRATE
  99. FLUZONE [Concomitant]
     Active Substance: INFLUENZA VIRUS VACCINE
  100. PHENAZOPYRIDINE [Concomitant]
     Active Substance: PHENAZOPYRIDINE
  101. LEVETIRACETAM [Concomitant]
     Active Substance: LEVETIRACETAM
  102. ENDOCET [Concomitant]
     Active Substance: ACETAMINOPHEN\OXYCODONE HYDROCHLORIDE
  103. MORPHINE SULFATE [Concomitant]
     Active Substance: MORPHINE SULFATE
  104. DIAZEPAM [Concomitant]
     Active Substance: DIAZEPAM
  105. METAXALONE [Concomitant]
     Active Substance: METAXALONE

REACTIONS (16)
  - Osteoporosis [Not Recovered/Not Resolved]
  - Multiple fractures [Not Recovered/Not Resolved]
  - Wrist fracture [Recovered/Resolved]
  - End stage renal disease [Not Recovered/Not Resolved]
  - Chronic kidney disease [Not Recovered/Not Resolved]
  - Chronic kidney disease [Unknown]
  - Renal injury [Unknown]
  - Osteonecrosis [Unknown]
  - Bone density decreased [Not Recovered/Not Resolved]
  - Tooth loss [Not Recovered/Not Resolved]
  - Osteopenia [Not Recovered/Not Resolved]
  - Tooth fracture [Not Recovered/Not Resolved]
  - Loss of personal independence in daily activities [Not Recovered/Not Resolved]
  - Walking aid user [Not Recovered/Not Resolved]
  - Fall [Not Recovered/Not Resolved]
  - Bone loss [Unknown]

NARRATIVE: CASE EVENT DATE: 20100515
